FAERS Safety Report 8555864 (Version 3)
Quarter: 2013Q2

REPORT INFORMATION
  Report Type: Spontaneous
  Country: US (occurrence: US)
  Receive Date: 20120510
  Receipt Date: 20130409
  Transmission Date: 20140414
  Serious: Yes (Hospitalization)
  Sender: FDA-Public Use
  Company Number: US-PFIZER INC-2012112369

PATIENT
  Age: 85 Year
  Sex: Female
  Weight: 77.1 kg

DRUGS (3)
  1. NORVASC [Suspect]
     Indication: BLOOD PRESSURE ABNORMAL
     Dosage: 5 MG, DAILY
  2. LIPITOR [Suspect]
     Dosage: UNK
  3. LISINOPRIL [Concomitant]
     Dosage: UNK

REACTIONS (3)
  - Cardiac failure [Unknown]
  - Local swelling [Recovering/Resolving]
  - Oedema [Recovering/Resolving]
